FAERS Safety Report 22039605 (Version 1)
Quarter: 2023Q1

REPORT INFORMATION
  Report Type: Spontaneous
  Country: US (occurrence: None)
  Receive Date: 20230224
  Receipt Date: 20230224
  Transmission Date: 20230417
  Serious: No
  Sender: FDA-Public Use
  Company Number: None

PATIENT
  Sex: Male
  Weight: 102.06 kg

DRUGS (12)
  1. ABIRATERONE [Suspect]
     Active Substance: ABIRATERONE
     Indication: Prostate cancer
     Dosage: FREQUENCY : DAILY;?
     Route: 048
  2. PREDNISONE [Suspect]
     Active Substance: PREDNISONE
     Indication: Prostate cancer
     Dosage: FREQUENCY : TWICE A DAY;?
     Route: 048
  3. AMLODIPINE [Concomitant]
     Active Substance: AMLODIPINE BESYLATE
  4. CLONIDINE [Concomitant]
     Active Substance: CLONIDINE
  5. FENOFIBRATE [Concomitant]
     Active Substance: FENOFIBRATE
  6. LOVASTATIN [Concomitant]
  7. ASPIRIN [Concomitant]
     Active Substance: ASPIRIN
  8. DOXAZOSIN [Concomitant]
     Active Substance: DOXAZOSIN MESYLATE
  9. CARVEDILOL [Concomitant]
     Active Substance: CARVEDILOL
  10. TYLENOL EXTRA STRENGTH [Concomitant]
     Active Substance: ACETAMINOPHEN
  11. LUPRON [Concomitant]
     Active Substance: LEUPROLIDE ACETATE
  12. LYNPARZA [Concomitant]
     Active Substance: OLAPARIB

REACTIONS (1)
  - Disease progression [None]
